FAERS Safety Report 4677090-4 (Version None)
Quarter: 2005Q2

REPORT INFORMATION
  Report Type: 
  Country: None (occurrence: None)
  Receive Date: 20050525
  Receipt Date: 20050525
  Transmission Date: 20051028
  Serious: Yes (Hospitalization)
  Sender: FDA-Public Use
  Company Number: None

PATIENT
  Age: 52 Year
  Sex: Female
  Weight: 95.3 kg

DRUGS (9)
  1. PHENOBARBITAL [Suspect]
  2. GABAPENTIN [Concomitant]
  3. QUETIAPINE [Concomitant]
  4. AZITHROMYCIN [Concomitant]
  5. IPRATROPIUM/ALBUTEROL [Concomitant]
  6. LITHIUM CARBONATE [Concomitant]
  7. THIAMINE [Concomitant]
  8. VENLAFAXINE HCL [Concomitant]
  9. ACETAMINOPHEN [Concomitant]

REACTIONS (2)
  - ABNORMAL BEHAVIOUR [None]
  - NYSTAGMUS [None]
